FAERS Safety Report 17467444 (Version 1)
Quarter: 2020Q1

REPORT INFORMATION
  Report Type: Spontaneous
  Country: US (occurrence: US)
  Receive Date: 20200227
  Receipt Date: 20200227
  Transmission Date: 20200409
  Serious: No
  Sender: FDA-Public Use
  Company Number: US-PFIZER INC-2020087150

PATIENT
  Age: 52 Year
  Sex: Female

DRUGS (1)
  1. EUCRISA [Suspect]
     Active Substance: CRISABOROLE
     Dosage: 1 APPLICATION TO AFFECTED AREA ON ONE HAND, 2X/DAY
     Route: 061

REACTIONS (1)
  - Drug ineffective [Unknown]
